FAERS Safety Report 23511913 (Version 2)
Quarter: 2024Q2

REPORT INFORMATION
  Report Type: Spontaneous
  Country: US (occurrence: US)
  Receive Date: 20240212
  Receipt Date: 20240418
  Transmission Date: 20240716
  Serious: Yes (Hospitalization, Other)
  Sender: FDA-Public Use
  Company Number: US-MLMSERVICE-20240124-4792724-1

PATIENT
  Age: 71 Year
  Sex: Female

DRUGS (5)
  1. FLECAINIDE [Interacting]
     Active Substance: FLECAINIDE
     Indication: Atrial fibrillation
     Dosage: 100 MILLIGRAM, TWO TIMES A DAY
     Route: 065
  2. FLECAINIDE [Interacting]
     Active Substance: FLECAINIDE
     Indication: Atrial tachycardia
  3. FLUOXETINE [Interacting]
     Active Substance: FLUOXETINE HYDROCHLORIDE
     Indication: Affective disorder
     Dosage: 60 MILLIGRAM, ONCE A DAY
     Route: 065
  4. METOPROLOL [Concomitant]
     Active Substance: METOPROLOL
     Indication: Atrial fibrillation
     Dosage: UNK
     Route: 065
  5. METOPROLOL [Concomitant]
     Active Substance: METOPROLOL
     Indication: Atrial tachycardia

REACTIONS (2)
  - Toxic encephalopathy [Recovered/Resolved]
  - Drug interaction [Recovered/Resolved]
